FAERS Safety Report 9900414 (Version 2)
Quarter: 2014Q2

REPORT INFORMATION
  Report Type: Spontaneous
  Country: IN (occurrence: IN)
  Receive Date: 20140217
  Receipt Date: 20140410
  Transmission Date: 20141212
  Serious: Yes (Other)
  Sender: FDA-Public Use
  Company Number: IN-ROCHE-1347203

PATIENT
  Sex: 0

DRUGS (3)
  1. ACTEMRA [Suspect]
     Indication: JUVENILE IDIOPATHIC ARTHRITIS
     Dosage: 8 MG/KG
     Route: 042
     Dates: start: 20131212
  2. FOLITRAX [Concomitant]
     Route: 065
  3. NAPROXEN [Concomitant]

REACTIONS (2)
  - Haemoglobin decreased [Recovering/Resolving]
  - Oesophagitis [Recovering/Resolving]
